FAERS Safety Report 5474351-6 (Version None)
Quarter: 2007Q4

REPORT INFORMATION
  Report Type: 
  Country: None (occurrence: None)
  Receive Date: 20071002
  Receipt Date: 20070731
  Transmission Date: 20080405
  Serious: No
  Sender: FDA-Public Use
  Company Number: US-ASTRAZENECA-2007UW18355

PATIENT
  Age: 74 Year
  Sex: Female
  Weight: 88.9 kg

DRUGS (4)
  1. ARIMIDEX [Suspect]
     Indication: BREAST CANCER METASTATIC
     Route: 048
     Dates: start: 20040101
  2. LIPITOR [Concomitant]
  3. ATENOLOL [Concomitant]
  4. DIURETIC [Concomitant]

REACTIONS (7)
  - ARTHRALGIA [None]
  - BODY HEIGHT DECREASED [None]
  - HOT FLUSH [None]
  - HYPERHIDROSIS [None]
  - NASOPHARYNGITIS [None]
  - RASH [None]
  - WEIGHT LOSS POOR [None]
